FAERS Safety Report 7241361-8 (Version None)
Quarter: 2011Q1

REPORT INFORMATION
  Report Type: 
  Country: None (occurrence: None)
  Receive Date: 20110120
  Receipt Date: 20110120
  Transmission Date: 20110831
  Serious: Yes (Life-Threatening, Hospitalization, Disabling, Congenital Anomaly, Other)
  Sender: FDA-Public Use
  Company Number: None

PATIENT
  Age: 1 Day
  Sex: Male
  Weight: 0.9072 kg

DRUGS (2)
  1. TPN ELECTROLYTES IN PLASTIC CONTAINER [Suspect]
  2. EFFEXOR [Suspect]
     Indication: MAJOR DEPRESSION
     Dosage: 300 MG ONCE A DAY PO
     Route: 048
     Dates: start: 20060501, end: 20100219

REACTIONS (14)
  - ECLAMPSIA [None]
  - CAESAREAN SECTION [None]
  - LIVER INJURY [None]
  - CARDIAC ARREST [None]
  - PREMATURE LABOUR [None]
  - OESOPHAGEAL ATRESIA [None]
  - PULMONARY APLASIA [None]
  - FINGER HYPOPLASIA [None]
  - SMALL FOR DATES BABY [None]
  - PATENT DUCTUS ARTERIOSUS [None]
  - PNEUMONIA [None]
  - DRUG EXPOSURE DURING PREGNANCY [None]
  - PILONIDAL CYST CONGENITAL [None]
  - LUNG DISORDER [None]
